FAERS Safety Report 8119043 (Version 4)
Quarter: 2012Q4

REPORT INFORMATION
  Report Type: 
  Country: CA (occurrence: CA)
  Receive Date: 20110902
  Receipt Date: 20120925
  Transmission Date: 20130627
  Serious: Yes (Other)
  Sender: FDA-Public Use
  Company Number: PHHY2011CA76657

PATIENT
  Sex: Female

DRUGS (3)
  1. ACLASTA [Suspect]
     Route: 042
     Dates: start: 20101014
  2. ACLASTA [Suspect]
     Route: 042
     Dates: start: 20111011
  3. LIDOCAINE [Concomitant]

REACTIONS (7)
  - Rib fracture [Unknown]
  - Musculoskeletal chest pain [Unknown]
  - Calcinosis [Unknown]
  - Mass [Unknown]
  - Pancreatitis chronic [Unknown]
  - Cystitis [Recovering/Resolving]
  - Blood urine [Recovering/Resolving]
